FAERS Safety Report 24874465 (Version 1)
Quarter: 2025Q1

REPORT INFORMATION
  Report Type: Spontaneous
  Country: FR (occurrence: FR)
  Receive Date: 20250122
  Receipt Date: 20250122
  Transmission Date: 20250409
  Serious: Yes (Death, Life-Threatening, Hospitalization, Other)
  Sender: AUROBINDO
  Company Number: FR-ACTAVIS-2014-11671

PATIENT
  Age: 70 Year
  Sex: Male

DRUGS (7)
  1. IRINOTECAN [Suspect]
     Active Substance: IRINOTECAN
     Indication: Rectal adenocarcinoma
     Route: 065
     Dates: start: 2009
  2. CAPECITABINE [Suspect]
     Active Substance: CAPECITABINE
     Indication: Rectal adenocarcinoma
     Route: 048
     Dates: start: 20080411
  3. ALTHIAZIDE\SPIRONOLACTONE [Suspect]
     Active Substance: ALTHIAZIDE\SPIRONOLACTONE
     Indication: Hypertension
     Route: 065
  4. ALTHIAZIDE\SPIRONOLACTONE [Suspect]
     Active Substance: ALTHIAZIDE\SPIRONOLACTONE
     Indication: Rectal adenocarcinoma
  5. BEVACIZUMAB [Suspect]
     Active Substance: BEVACIZUMAB
     Indication: Rectal adenocarcinoma
     Route: 065
     Dates: start: 2009
  6. GLICLAZIDE [Concomitant]
     Active Substance: GLICLAZIDE
     Indication: Type 2 diabetes mellitus
     Route: 065
  7. FENOFIBRATE [Concomitant]
     Active Substance: FENOFIBRATE
     Indication: Dyslipidaemia
     Route: 065

REACTIONS (29)
  - Candida sepsis [Fatal]
  - Drug-disease interaction [Fatal]
  - Mucosal inflammation [Unknown]
  - Streptococcal sepsis [Unknown]
  - Fatigue [Unknown]
  - Febrile neutropenia [Unknown]
  - Febrile bone marrow aplasia [Unknown]
  - Necrotising oesophagitis [Unknown]
  - Acute kidney injury [Unknown]
  - Lactic acidosis [Unknown]
  - Colitis ulcerative [Unknown]
  - Bacterial translocation [Unknown]
  - Paralysis [Unknown]
  - Vomiting [Unknown]
  - Diarrhoea [Unknown]
  - Palmar-plantar erythrodysaesthesia syndrome [Unknown]
  - Asthenia [Unknown]
  - Bacterial infection [Unknown]
  - Intestinal obstruction [Unknown]
  - Dehydration [Unknown]
  - Frequent bowel movements [Unknown]
  - Malnutrition [Unknown]
  - Mucous stools [Unknown]
  - Neurological symptom [Unknown]
  - Mouth ulceration [Unknown]
  - Mental disorder [Unknown]
  - Toxicity to various agents [Unknown]
  - Renal impairment [Unknown]
  - Colostomy [Unknown]

NARRATIVE: CASE EVENT DATE: 20080401
